FAERS Safety Report 8487382-9 (Version None)
Quarter: 2012Q3

REPORT INFORMATION
  Report Type: 
  Country: None (occurrence: None)
  Receive Date: 20120705
  Receipt Date: 20120622
  Transmission Date: 20120928
  Serious: Yes (Life-Threatening, Hospitalization, Other)
  Sender: FDA-Public Use
  Company Number: FR-ELI_LILLY_AND_COMPANY-FR200912002554

PATIENT
  Sex: Female
  Weight: 54.8 kg

DRUGS (4)
  1. PROZAC [Suspect]
     Dosage: 20 MG, 2/D
     Route: 048
  2. PROGESTERONE [Concomitant]
  3. LEXOMIL [Concomitant]
     Route: 048
  4. ZOPICLONE [Concomitant]
     Route: 048

REACTIONS (8)
  - MULTI-ORGAN FAILURE [None]
  - CARDIOGENIC SHOCK [None]
  - THROMBOCYTOPENIA [None]
  - VOMITING [None]
  - RENAL FAILURE ACUTE [None]
  - COMA [None]
  - SINOATRIAL BLOCK [None]
  - INTENTIONAL OVERDOSE [None]
